FAERS Safety Report 23518646 (Version 1)
Quarter: 2024Q1

REPORT INFORMATION
  Report Type: Spontaneous
  Country: CN (occurrence: CN)
  Receive Date: 20240213
  Receipt Date: 20240213
  Transmission Date: 20240410
  Serious: Yes (Life-Threatening, Other)
  Sender: FDA-Public Use
  Company Number: CN-PFIZER INC-PV202400019294

PATIENT
  Age: 87 Year
  Sex: Female
  Weight: 60 kg

DRUGS (4)
  1. LINEZOLID [Suspect]
     Active Substance: LINEZOLID
     Indication: Anti-infective therapy
     Dosage: 0.6 G, 2X/DAY (EVERY 12 HOURS)
     Route: 048
     Dates: start: 20231219
  2. LINEZOLID [Suspect]
     Active Substance: LINEZOLID
     Dosage: 0.6 G, 2X/DAY (EVERY 12 HOURS)
     Route: 048
     Dates: start: 20240125, end: 20240131
  3. LINEZOLID [Suspect]
     Active Substance: LINEZOLID
     Indication: Anti-infective therapy
     Dosage: UNK
     Route: 041
     Dates: start: 202312
  4. LINEZOLID [Suspect]
     Active Substance: LINEZOLID
     Dosage: 0.6 G, 2X/DAY (EVERY 12 HOURS)
     Route: 041
     Dates: start: 20231227, end: 20240125

REACTIONS (8)
  - Hyperlactacidaemia [Recovered/Resolved]
  - Altered state of consciousness [Unknown]
  - Diabetic ketoacidosis [Unknown]
  - Vomiting [Unknown]
  - Nausea [Unknown]
  - Heart rate increased [Unknown]
  - Sinus tachycardia [Unknown]
  - Electrocardiogram T wave abnormal [Unknown]

NARRATIVE: CASE EVENT DATE: 20231201
